FAERS Safety Report 11994481 (Version 1)
Quarter: 2016Q1

REPORT INFORMATION
  Report Type: Spontaneous
  Country: US (occurrence: US)
  Receive Date: 20160203
  Receipt Date: 20160203
  Transmission Date: 20160526
  Serious: Yes (Hospitalization)
  Sender: FDA-Public Use
  Company Number: US-UCBSA-2015032958

PATIENT
  Age: 62 Year
  Sex: Female

DRUGS (4)
  1. CARBAMAZEPINE. [Concomitant]
     Active Substance: CARBAMAZEPINE
     Indication: SEIZURE
     Dosage: 200MG
  2. KEPPRA [Suspect]
     Active Substance: LEVETIRACETAM
     Indication: SEIZURE
     Dosage: 750 MG, 2X/DAY (BID)
     Dates: start: 2013, end: 201509
  3. KEPPRA [Suspect]
     Active Substance: LEVETIRACETAM
     Dosage: 1500 MG, 2X/DAY (BID)
     Dates: start: 201509, end: 201510
  4. VIMPAT [Suspect]
     Active Substance: LACOSAMIDE
     Indication: PRODUCT USED FOR UNKNOWN INDICATION
     Dosage: UNK, 100 2/DAY
     Dates: start: 201510, end: 201510

REACTIONS (9)
  - Abdominal discomfort [Unknown]
  - Asthenia [Unknown]
  - Eating disorder [Recovered/Resolved]
  - Fear [Recovered/Resolved]
  - Dizziness [Unknown]
  - Headache [Unknown]
  - Seizure [Recovered/Resolved]
  - Unevaluable event [Recovered/Resolved]
  - Nausea [Unknown]

NARRATIVE: CASE EVENT DATE: 20150926
